FAERS Safety Report 8458015-2 (Version None)
Quarter: 2012Q2

REPORT INFORMATION
  Report Type: 
  Country: None (occurrence: None)
  Receive Date: 20120622
  Receipt Date: 20120612
  Transmission Date: 20120825
  Serious: Yes (Hospitalization, Other)
  Sender: FDA-Public Use
  Company Number: US-GENZYME-THYM-1003278

PATIENT
  Sex: Male
  Weight: 93.7 kg

DRUGS (117)
  1. COREG [Concomitant]
     Dosage: 25 MG, TID
     Route: 048
     Dates: start: 20110914
  2. VALCYTE [Concomitant]
     Indication: PRODUCT USED FOR UNKNOWN INDICATION
     Dosage: 450 MG, QD
     Route: 048
     Dates: start: 20110901, end: 20110907
  3. AMBIEN CR [Concomitant]
     Indication: PRODUCT USED FOR UNKNOWN INDICATION
     Dosage: 12.5 MG, PRN
     Route: 048
  4. ASPIRIN [Concomitant]
     Indication: PRODUCT USED FOR UNKNOWN INDICATION
     Dosage: 81 MG, QD
     Route: 048
  5. LEXAPRO [Concomitant]
     Indication: PRODUCT USED FOR UNKNOWN INDICATION
     Dosage: 20 MG, QD
     Route: 048
     Dates: start: 20110901, end: 20110907
  6. VERSED [Concomitant]
     Indication: PRODUCT USED FOR UNKNOWN INDICATION
     Dosage: 2 MG, UNK
     Route: 042
     Dates: start: 20110831, end: 20110831
  7. LONITEN [Concomitant]
     Dosage: 2.5 MG, BID
     Route: 048
     Dates: start: 20110906, end: 20110907
  8. ZOFRAN [Concomitant]
     Indication: VOMITING
     Dosage: 4 MG, PRN
     Route: 042
     Dates: start: 20110831, end: 20110903
  9. SODIUM CHLORIDE [Concomitant]
     Dosage: 1000 ML, UNK
     Route: 042
     Dates: start: 20110907, end: 20110907
  10. BENADRYL [Concomitant]
     Indication: PRODUCT USED FOR UNKNOWN INDICATION
     Dosage: 25 MG, ONCE
     Route: 048
     Dates: start: 20110902, end: 20110902
  11. SUBLIMAZE PRESERVATIVE FREE [Concomitant]
     Indication: PRODUCT USED FOR UNKNOWN INDICATION
     Dosage: 25-100 MCG, UNK
     Route: 042
     Dates: start: 20110907, end: 20110907
  12. PROGRAF [Concomitant]
     Dosage: 1 MG, ONCE
     Route: 048
     Dates: start: 20110908, end: 20110909
  13. CELLCEPT [Concomitant]
     Dosage: 1000 MG, BID
     Route: 048
     Dates: start: 20110907, end: 20110914
  14. CORTICOSTEROID NOS [Concomitant]
     Indication: PROPHYLAXIS AGAINST TRANSPLANT REJECTION
     Dosage: UNK
     Route: 065
  15. DELTASONE [Concomitant]
     Indication: PRODUCT USED FOR UNKNOWN INDICATION
     Dosage: 5 MG, QD
     Route: 048
     Dates: start: 20110901, end: 20110914
  16. DELTASONE [Concomitant]
     Dosage: 5 MG, QD
     Route: 048
     Dates: start: 20110914
  17. FERROUS SULFATE TAB [Concomitant]
     Dosage: 325 MG, BID
     Route: 048
     Dates: start: 20110914, end: 20111014
  18. COREG [Concomitant]
     Dosage: 50 MG, BID
     Route: 048
     Dates: start: 20110903, end: 20110907
  19. CARDURA [Concomitant]
     Dosage: 8 MG, BID
     Route: 048
     Dates: start: 20110904, end: 20110907
  20. OXYCONTIN [Concomitant]
     Indication: PRODUCT USED FOR UNKNOWN INDICATION
     Dosage: 10 MG, ONCE
     Route: 048
     Dates: start: 20110831, end: 20110831
  21. OXYCONTIN [Concomitant]
     Dosage: 10 MG, BID
     Route: 048
     Dates: start: 20110901, end: 20110924
  22. PERCOCET [Concomitant]
     Dosage: UNK
     Route: 048
     Dates: start: 20110907, end: 20110914
  23. VALCYTE [Concomitant]
     Dosage: 450 MG, QD
     Route: 048
     Dates: start: 20110907, end: 20110914
  24. NORCO [Concomitant]
     Indication: PAIN
     Dosage: UNK
     Route: 048
     Dates: start: 20110831, end: 20110907
  25. DEMEROL [Concomitant]
     Indication: PAIN
     Dosage: 1.512 MG, PRN
     Route: 042
  26. MORPHINE [Concomitant]
     Indication: PAIN
     Dosage: 2 MG, PRN
     Route: 042
     Dates: start: 20110831, end: 20110831
  27. LONITEN [Concomitant]
     Dosage: 5 MG, BID
     Route: 048
     Dates: start: 20110907, end: 20110907
  28. LONITEN [Concomitant]
     Dosage: 5 MG, BID
     Route: 048
     Dates: start: 20110908, end: 20110912
  29. ZOFRAN [Concomitant]
     Dosage: 4 MG, PRN
     Route: 042
     Dates: start: 20110907, end: 20110914
  30. PHENERGAN [Concomitant]
     Indication: NAUSEA
     Dosage: 25 MG, PRN
     Route: 042
     Dates: start: 20110831, end: 20110902
  31. DILAUDID [Concomitant]
     Dosage: 4 MG, PRN
     Route: 048
     Dates: start: 20110901, end: 20110907
  32. SODIUM CHLORIDE [Concomitant]
     Dosage: 100 ML/HR
     Route: 042
     Dates: start: 20110831, end: 20110831
  33. BENADRYL [Concomitant]
     Dosage: 25 MG, ONCE
     Route: 048
     Dates: start: 20110904, end: 20110904
  34. FRAGMIN [Concomitant]
     Indication: PRODUCT USED FOR UNKNOWN INDICATION
     Dosage: 5000 IU, QD
     Route: 058
     Dates: start: 20110901, end: 20110907
  35. PROGRAF [Concomitant]
     Dosage: 1 MG, QD
     Route: 048
     Dates: start: 20110904, end: 20110907
  36. PROGRAF [Concomitant]
     Dosage: 1 MG, BID
     Route: 048
     Dates: start: 20110907, end: 20110907
  37. FERROUS SULFATE TAB [Concomitant]
     Indication: PRODUCT USED FOR UNKNOWN INDICATION
     Dosage: 325 MG, BID
     Route: 048
     Dates: start: 20110831, end: 20110907
  38. CARDURA [Concomitant]
     Indication: PRODUCT USED FOR UNKNOWN INDICATION
     Dosage: 2 MG, BID
     Route: 048
     Dates: start: 20110831, end: 20110901
  39. ZOCOR [Concomitant]
     Indication: PRODUCT USED FOR UNKNOWN INDICATION
     Dosage: 40 MG, QD
     Route: 048
     Dates: start: 20110831, end: 20110914
  40. TESTOSTERONE [Concomitant]
     Indication: PRODUCT USED FOR UNKNOWN INDICATION
     Dosage: UNK
     Route: 061
  41. LONITEN [Concomitant]
     Indication: PRODUCT USED FOR UNKNOWN INDICATION
     Dosage: 5 MG, BID
     Route: 048
     Dates: start: 20110905, end: 20110906
  42. DILAUDID [Concomitant]
     Indication: PAIN
     Dosage: 012011 UNK, UNK
     Route: 065
     Dates: start: 20110901, end: 20110901
  43. ROBAXIN [Concomitant]
     Indication: MUSCLE SPASMS
     Dosage: 1000 MG, ONCE
     Route: 042
     Dates: start: 20110831, end: 20110831
  44. ACETAMINOPHEN [Concomitant]
     Indication: PRODUCT USED FOR UNKNOWN INDICATION
     Dosage: 650 MG, ONCE
     Route: 048
     Dates: start: 20110902, end: 20110902
  45. TRANSDERM SCOP [Concomitant]
     Indication: PRODUCT USED FOR UNKNOWN INDICATION
     Dosage: 1 PATCH; ONCE
     Route: 062
     Dates: start: 20110831, end: 20110831
  46. MARCAINE [Concomitant]
     Indication: PRODUCT USED FOR UNKNOWN INDICATION
     Dosage: UNK
     Route: 065
     Dates: start: 20110831, end: 20110831
  47. ROCEPHIN [Concomitant]
     Indication: PRODUCT USED FOR UNKNOWN INDICATION
     Dosage: 2 G, QD
     Route: 042
     Dates: start: 20110902, end: 20110907
  48. PROGRAF [Concomitant]
     Dosage: 1 MG, TID
     Route: 048
     Dates: start: 20110914
  49. NEURONTIN [Concomitant]
     Dosage: 100M MG, TID
     Route: 048
     Dates: start: 20110914, end: 20110928
  50. PROTONIX [Concomitant]
     Dosage: 40 MG, QD
     Route: 048
     Dates: start: 20110914
  51. COREG [Concomitant]
     Dosage: 25 MG, BID
     Route: 048
     Dates: start: 20110902, end: 20110903
  52. CATAPRES [Concomitant]
     Dosage: 0.2 MG, TID
     Route: 048
     Dates: start: 20110901, end: 20110907
  53. PLAVIX [Concomitant]
     Indication: PRODUCT USED FOR UNKNOWN INDICATION
     Dosage: 75 MG, QD
     Route: 048
  54. MORPHINE [Concomitant]
     Dosage: 15-30 MG, BID
     Route: 048
     Dates: start: 20110831, end: 20110907
  55. MORPHINE [Concomitant]
     Dosage: 15-30 MG
     Route: 048
     Dates: start: 20110907, end: 20110914
  56. ZOFRAN [Concomitant]
     Dosage: 4 MG, PRN
     Route: 042
     Dates: start: 20110903, end: 20110907
  57. AMBIEN [Concomitant]
     Indication: SLEEP DISORDER
     Dosage: 5 MG, PRN
     Route: 048
     Dates: start: 20110831, end: 20110831
  58. SODIUM CHLORIDE [Concomitant]
     Dosage: 42 ML/HR
     Route: 042
     Dates: start: 20110831, end: 20110831
  59. PEPCID [Concomitant]
     Indication: PRODUCT USED FOR UNKNOWN INDICATION
     Dosage: 20 MG, ONCE
     Route: 048
     Dates: start: 20110831, end: 20110831
  60. VANCOCIN HYDROCHLORIDE [Concomitant]
     Dosage: 1250 MG, QD
     Route: 042
     Dates: start: 20110905, end: 20110914
  61. PROTONIX [Concomitant]
     Indication: PRODUCT USED FOR UNKNOWN INDICATION
     Dosage: 40 MG, QD
     Route: 048
     Dates: start: 20110831, end: 20110907
  62. PERCOCET [Concomitant]
     Indication: PRODUCT USED FOR UNKNOWN INDICATION
     Dosage: 5-325 MG
     Dates: start: 20110831, end: 20110901
  63. VALIUM [Concomitant]
     Dosage: UNK
     Route: 048
     Dates: start: 20110831, end: 20110907
  64. ZOCOR [Concomitant]
     Dosage: 40 MG, QD
     Route: 048
     Dates: start: 20110914
  65. CATAPRES [Concomitant]
     Dosage: 0.2 MG, TID
     Route: 048
     Dates: start: 20110914
  66. VALCYTE [Concomitant]
     Dosage: 450 MG, QD
     Route: 048
     Dates: start: 20110914
  67. TADALAFIL [Concomitant]
     Indication: ERECTILE DYSFUNCTION
     Dosage: 5 MG, PRN
     Route: 048
  68. LOVENOX [Concomitant]
     Indication: PRODUCT USED FOR UNKNOWN INDICATION
     Route: 058
  69. SULFAMETHOXAZOLE W [Concomitant]
     Indication: PRODUCT USED FOR UNKNOWN INDICATION
     Dosage: UNK
     Route: 048
  70. ROBAXIN [Concomitant]
     Dosage: 500 MG, PRN
     Route: 048
     Dates: start: 20110831, end: 20110907
  71. SODIUM CHLORIDE [Concomitant]
     Dosage: 3000 ML, UNK
     Route: 065
     Dates: start: 20110831, end: 20110831
  72. ACETAMINOPHEN [Concomitant]
     Indication: HEADACHE
  73. VASOTEC [Concomitant]
     Indication: PRODUCT USED FOR UNKNOWN INDICATION
     Dosage: 1.25 MG, ONCE
     Route: 042
     Dates: start: 20110904, end: 20110904
  74. KAYEXALATE [Concomitant]
     Indication: PRODUCT USED FOR UNKNOWN INDICATION
     Dosage: 30 G, ONCE
     Route: 048
     Dates: start: 20110901, end: 20110901
  75. MINTOX [Concomitant]
     Indication: PRODUCT USED FOR UNKNOWN INDICATION
     Dosage: 15 ML, EVERY 6 HR
     Route: 048
  76. PROGRAF [Concomitant]
     Dosage: 1 MG, QD
     Route: 048
     Dates: start: 20110910, end: 20110914
  77. CELLCEPT [Concomitant]
     Indication: PRODUCT USED FOR UNKNOWN INDICATION
     Dosage: 1000 MG, BID
     Route: 048
     Dates: start: 20110831, end: 20110907
  78. NEURONTIN [Concomitant]
     Indication: PRODUCT USED FOR UNKNOWN INDICATION
     Dosage: 200 MG, QD
     Route: 048
     Dates: start: 20110909, end: 20110911
  79. NORVASC [Concomitant]
     Indication: PRODUCT USED FOR UNKNOWN INDICATION
     Dosage: 2.5 MG, QD
     Route: 048
     Dates: start: 20110912, end: 20110912
  80. PROTONIX [Concomitant]
     Dosage: 5 MG, QD
     Route: 048
     Dates: start: 20110907, end: 20110914
  81. COREG [Concomitant]
     Indication: PRODUCT USED FOR UNKNOWN INDICATION
     Dosage: 50 MG, BID
     Route: 048
     Dates: start: 20110831, end: 20110902
  82. CATAPRES [Concomitant]
     Indication: PRODUCT USED FOR UNKNOWN INDICATION
     Dosage: 0.1 MG, ONCE
     Route: 048
     Dates: start: 20110831, end: 20110901
  83. FISH OIL [Concomitant]
     Indication: PRODUCT USED FOR UNKNOWN INDICATION
     Dosage: 1000 MG, BID
     Route: 048
  84. ZOFRAN [Concomitant]
     Indication: NAUSEA
     Dosage: 4 MG, UNK
     Route: 042
     Dates: start: 20110831, end: 20110831
  85. PHENERGAN [Concomitant]
     Dosage: 12.5 MG, PRN
     Route: 048
     Dates: start: 20110902, end: 20110907
  86. PHENERGAN [Concomitant]
  87. AMBIEN [Concomitant]
     Dosage: 10 MG, PRN
     Route: 048
     Dates: start: 20110831, end: 20110914
  88. SODIUM CHLORIDE [Concomitant]
     Dosage: 50 ML/HR
     Route: 042
     Dates: start: 20110904, end: 20110905
  89. ACETAMINOPHEN [Concomitant]
     Indication: PYREXIA
     Dosage: 650 MG, PRN
     Route: 065
     Dates: start: 20110907, end: 20110914
  90. CLEOCIN HYDROCHLORIDE [Concomitant]
     Indication: PRODUCT USED FOR UNKNOWN INDICATION
     Dosage: 900 MG, ONCE
     Route: 042
     Dates: start: 20110831, end: 20110831
  91. LYRICA [Concomitant]
     Indication: PRODUCT USED FOR UNKNOWN INDICATION
     Dosage: 75 MG, ONCE
     Route: 048
     Dates: start: 20110831, end: 20110831
  92. TRANSDERM SCOP [Concomitant]
     Dosage: 1 PATCH; ONCE
     Route: 062
     Dates: start: 20110901, end: 20110901
  93. VANCOCIN HYDROCHLORIDE [Concomitant]
     Indication: PRODUCT USED FOR UNKNOWN INDICATION
     Dosage: 1000 MG, BID
     Route: 042
     Dates: start: 20110831, end: 20110903
  94. VANCOCIN HYDROCHLORIDE [Concomitant]
     Dosage: 1000 MG, QD
     Route: 042
     Dates: start: 20110904, end: 20110904
  95. VANCOCIN HYDROCHLORIDE [Concomitant]
  96. PROGRAF [Concomitant]
     Indication: PROPHYLAXIS AGAINST TRANSPLANT REJECTION
     Dosage: UNK
     Route: 065
  97. CELLCEPT [Concomitant]
     Indication: PROPHYLAXIS AGAINST TRANSPLANT REJECTION
     Dosage: UNK
     Route: 065
  98. CELLCEPT [Concomitant]
     Dosage: 250 MG, BID
     Route: 048
     Dates: start: 20110914
  99. COLACE [Concomitant]
     Indication: PRODUCT USED FOR UNKNOWN INDICATION
     Dosage: 100 MG, BID
     Route: 048
     Dates: start: 20110901, end: 20110907
  100. COLACE [Concomitant]
     Dosage: 100 MG, ONCE
     Route: 048
     Dates: start: 20110914
  101. CARDURA [Concomitant]
     Dosage: 8 MG, BID
     Route: 048
     Dates: start: 20110914
  102. PERCOCET [Concomitant]
     Dosage: UNK
     Route: 048
     Dates: start: 20110914
  103. VITAMIN D [Concomitant]
     Indication: PRODUCT USED FOR UNKNOWN INDICATION
     Dosage: 1000 IU, UNK
     Route: 065
  104. VERSED [Concomitant]
     Dosage: UNK
     Route: 042
     Dates: start: 20110907, end: 20110907
  105. FLOMAX [Concomitant]
     Indication: URINARY RETENTION
     Dosage: 0.4 MG, PRN
     Route: 048
     Dates: start: 20110831, end: 20110907
  106. LONITEN [Concomitant]
     Dosage: 2.5 MG, QD
     Route: 048
     Dates: start: 20110913, end: 20110913
  107. SODIUM CHLORIDE [Concomitant]
     Dosage: 125 ML/HR
     Route: 042
     Dates: start: 20110831, end: 20110831
  108. NORMODYNE [Concomitant]
     Indication: PRODUCT USED FOR UNKNOWN INDICATION
     Dosage: 200 MG, BID
     Route: 048
     Dates: start: 20110905, end: 20110905
  109. DECADRON [Concomitant]
     Indication: PRODUCT USED FOR UNKNOWN INDICATION
     Dosage: 4 MG, ONCE
     Route: 048
     Dates: start: 20110831, end: 20110831
  110. THYMOGLOBULIN [Suspect]
     Indication: PROPHYLAXIS AGAINST TRANSPLANT REJECTION
     Dosage: UNK
     Route: 065
     Dates: start: 20110204, end: 20110212
  111. PROGRAF [Concomitant]
     Indication: PRODUCT USED FOR UNKNOWN INDICATION
     Dosage: 2 MG, BID
     Route: 048
     Dates: start: 20110831, end: 20110904
  112. NORVASC [Concomitant]
     Dosage: 5 MG, QD
     Route: 048
     Dates: start: 20110913, end: 20110914
  113. CARDURA [Concomitant]
     Dosage: 4 MG, BID
     Route: 048
     Dates: start: 20110901, end: 20110904
  114. PERCOCET [Concomitant]
     Indication: PAIN
     Dosage: 7.5-325 MG
     Route: 048
     Dates: start: 20110901, end: 20110907
  115. VALIUM [Concomitant]
     Indication: MUSCLE SPASMS
     Dosage: 5 MG, PRN
     Route: 048
     Dates: start: 20110914
  116. MORPHINE [Concomitant]
     Dosage: 2-4 MG, BID
     Route: 042
     Dates: start: 20110831, end: 20110907
  117. SODIUM CHLORIDE [Concomitant]
     Indication: PRODUCT USED FOR UNKNOWN INDICATION
     Dosage: 1000 ML, UNK
     Route: 065
     Dates: start: 20110831, end: 20110831

REACTIONS (9)
  - UNEVALUABLE EVENT [None]
  - LEUKOPENIA [None]
  - HIP ARTHROPLASTY [None]
  - ANAEMIA [None]
  - WEIGHT BEARING DIFFICULTY [None]
  - HYPERKALAEMIA [None]
  - BACTERIAL TEST [None]
  - METABOLIC ACIDOSIS [None]
  - HYPOXIA [None]
